FAERS Safety Report 11776621 (Version 3)
Quarter: 2015Q4

REPORT INFORMATION
  Report Type: Report from Study
  Country: BR (occurrence: BR)
  Receive Date: 20151125
  Receipt Date: 20151221
  Transmission Date: 20160304
  Serious: Yes (Other)
  Sender: FDA-Public Use
  Company Number: BR-ABBVIE-15K-020-1504795-00

PATIENT
  Sex: Female

DRUGS (1)
  1. HUMIRA [Suspect]
     Active Substance: ADALIMUMAB
     Indication: PSORIATIC ARTHROPATHY
     Route: 058
     Dates: start: 20130703

REACTIONS (19)
  - Post procedural infection [Recovered/Resolved]
  - Arthralgia [Not Recovered/Not Resolved]
  - Pain in extremity [Not Recovered/Not Resolved]
  - Headache [Recovering/Resolving]
  - Onychalgia [Not Recovered/Not Resolved]
  - Photosensitivity reaction [Recovering/Resolving]
  - Urinary tract infection [Recovered/Resolved]
  - Malaise [Recovering/Resolving]
  - Pain [Not Recovered/Not Resolved]
  - Hypoaesthesia [Recovering/Resolving]
  - Nasal congestion [Recovering/Resolving]
  - Rhinitis [Recovered/Resolved]
  - Pain [Recovered/Resolved]
  - Psoriasis [Not Recovered/Not Resolved]
  - Facial pain [Recovering/Resolving]
  - Vision blurred [Recovering/Resolving]
  - Maxillofacial sinus neoplasm [Recovering/Resolving]
  - Inflammation [Recovering/Resolving]
  - Skin papilloma [Not Recovered/Not Resolved]

NARRATIVE: CASE EVENT DATE: 2013
